FAERS Safety Report 21748997 (Version 1)
Quarter: 2022Q4

REPORT INFORMATION
  Report Type: Spontaneous
  Country: US (occurrence: None)
  Receive Date: 20221219
  Receipt Date: 20221219
  Transmission Date: 20230113
  Serious: Yes (Death)
  Sender: FDA-Public Use
  Company Number: None

PATIENT
  Age: 85 Year
  Sex: Female
  Weight: 63.05 kg

DRUGS (1)
  1. SEROQUEL [Suspect]
     Active Substance: QUETIAPINE FUMARATE
     Indication: Dementia
     Dosage: FREQUENCY : TWICE A DAY;?
     Route: 048
     Dates: start: 20220903, end: 20220903

REACTIONS (12)
  - Product prescribing issue [None]
  - Product use in unapproved indication [None]
  - Somnolence [None]
  - Musculoskeletal disorder [None]
  - Syncope [None]
  - Hypophagia [None]
  - Near death experience [None]
  - Hypotension [None]
  - Vomiting [None]
  - Loss of consciousness [None]
  - Mechanical ventilation [None]
  - Lethargy [None]
